FAERS Safety Report 6417815-0 (Version None)
Quarter: 2009Q4

REPORT INFORMATION
  Report Type: 
  Country: None (occurrence: None)
  Receive Date: 20091027
  Receipt Date: 20091027
  Transmission Date: 20100525
  Serious: Yes (Life-Threatening)
  Sender: FDA-Public Use
  Company Number: None

PATIENT
  Age: 69 Year
  Sex: Male
  Weight: 70.2 kg

DRUGS (7)
  1. HEPARIN [Suspect]
     Indication: PROPHYLAXIS
     Dosage: 1000 UNITS/HR IV
     Route: 040
     Dates: start: 20090803
  2. CEFEPIME [Concomitant]
  3. ASPIRIN [Concomitant]
  4. NYSTATIN [Concomitant]
  5. VANCOMYCIN [Concomitant]
  6. AMIODARONE [Concomitant]
  7. PRAVASTATIN [Concomitant]

REACTIONS (2)
  - ACTIVATED PARTIAL THROMBOPLASTIN TIME PROLONGED [None]
  - MELAENA [None]
